FAERS Safety Report 4540046-6 (Version None)
Quarter: 2004Q4

REPORT INFORMATION
  Report Type: 
  Country: None (occurrence: None)
  Receive Date: 20041223
  Receipt Date: 20041215
  Transmission Date: 20050328
  Serious: Yes (Hospitalization, Other)
  Sender: FDA-Public Use
  Company Number: 2004114450

PATIENT
  Age: 25 Year
  Sex: Male

DRUGS (4)
  1. NEURONTIN [Suspect]
     Indication: BACK PAIN
     Dosage: ORAL
     Route: 048
     Dates: start: 20040101
  2. OXYCODONE HCL [Suspect]
     Indication: ILL-DEFINED DISORDER
     Dates: start: 20040101
  3. METHADONE (METHADONE) [Suspect]
     Indication: ILL-DEFINED DISORDER
     Dates: start: 20040101
  4. ALL OTHER THERAPEUTIC PRODUCTS (ALL OTHER THERAPEUTIC PRODUCTS) [Suspect]
     Indication: ILL-DEFINED DISORDER
     Dates: start: 20040101

REACTIONS (1)
  - HEPATORENAL FAILURE [None]
